FAERS Safety Report 9776845 (Version 3)
Quarter: 2014Q1

REPORT INFORMATION
  Report Type: Spontaneous
  Country: BR (occurrence: BR)
  Receive Date: 20131221
  Receipt Date: 20140227
  Transmission Date: 20141002
  Serious: Yes (Hospitalization, Other)
  Sender: FDA-Public Use
  Company Number: BR-ASTRAZENECA-2013SE92001

PATIENT
  Age: 58 Year
  Sex: Male
  Weight: 100 kg

DRUGS (10)
  1. BRILINTA [Suspect]
     Indication: CARDIOVASCULAR EVENT PROPHYLAXIS
     Route: 048
     Dates: start: 201209, end: 20140210
  2. SELOZOK [Suspect]
     Route: 048
     Dates: start: 201209
  3. OMEPRAZOLE [Suspect]
     Indication: GASTRITIS PROPHYLAXIS
     Dosage: UNKNOWN DOSE DAILY, UNSPECIFIED MANUFACTURER
     Route: 048
     Dates: start: 201209
  4. HYDROCHLOROTHIAZIDE [Suspect]
     Route: 048
     Dates: start: 201209
  5. SIMVASTATIN [Concomitant]
     Indication: BLOOD CHOLESTEROL INCREASED
     Route: 048
     Dates: start: 201209
  6. ASA [Concomitant]
     Dosage: DAILY
     Route: 048
     Dates: start: 201209
  7. AMLODIPINE BESYLATE [Concomitant]
     Route: 048
     Dates: start: 201209
  8. CLONIDINE HYDROCHLORIDE [Concomitant]
     Route: 048
     Dates: start: 201209
  9. ACETAMINOPHEN [Concomitant]
     Indication: ARTHRALGIA
     Dosage: AS REQUIRED
     Route: 048
     Dates: start: 2013
  10. PACO [Concomitant]
     Indication: ARTHRALGIA
     Dosage: AS REQUIRED
     Route: 048
     Dates: start: 2013

REACTIONS (4)
  - Arterial occlusive disease [Recovered/Resolved]
  - Device material issue [Not Recovered/Not Resolved]
  - Implant site pain [Not Recovered/Not Resolved]
  - Dyspnoea [Recovered/Resolved]
